FAERS Safety Report 16990168 (Version 1)
Quarter: 2019Q4

REPORT INFORMATION
  Report Type: Spontaneous
  Country: US (occurrence: US)
  Receive Date: 20191101
  Receipt Date: 20191101
  Transmission Date: 20200122
  Serious: Yes (Hospitalization)
  Sender: FDA-Public Use
  Company Number: None

PATIENT
  Age: 60 Year
  Sex: Male

DRUGS (3)
  1. TEMOZOLOMIDE. [Suspect]
     Active Substance: TEMOZOLOMIDE
     Indication: BRAIN NEOPLASM MALIGNANT
     Dosage: ?          OTHER FREQUENCY:FOR 5 DAYS;?
     Route: 048
     Dates: start: 20190326
  2. DEXAMETHAZONE [Concomitant]
     Active Substance: DEXAMETHASONE
  3. ONDANSETRON [Suspect]
     Active Substance: ONDANSETRON
     Indication: NAUSEA
     Dosage: ?          OTHER FREQUENCY:AS NEEDED;?
     Route: 048
     Dates: start: 20190327

REACTIONS (1)
  - Brain operation [None]

NARRATIVE: CASE EVENT DATE: 20191029
